FAERS Safety Report 10458986 (Version 1)
Quarter: 2014Q3

REPORT INFORMATION
  Report Type: Spontaneous
  Country: US (occurrence: None)
  Receive Date: 20140916
  Receipt Date: 20140916
  Transmission Date: 20150326
  Serious: No
  Sender: FDA-Public Use
  Company Number: None

PATIENT
  Age: 13 Year
  Sex: Female

DRUGS (1)
  1. CONCERTA [Suspect]
     Active Substance: METHYLPHENIDATE HYDROCHLORIDE
     Dosage: 18 MG  AM
     Route: 048
     Dates: start: 20140910, end: 20140915

REACTIONS (3)
  - Product substitution issue [None]
  - Drug effect decreased [None]
  - Drug intolerance [None]

NARRATIVE: CASE EVENT DATE: 20140910
